FAERS Safety Report 7967005-5 (Version None)
Quarter: 2011Q4

REPORT INFORMATION
  Report Type: 
  Country: None (occurrence: None)
  Receive Date: 20111209
  Receipt Date: 20111129
  Transmission Date: 20120403
  Serious: Yes (Hospitalization, Other)
  Sender: FDA-Public Use
  Company Number: JP-GENZYME-THYM-1001165

PATIENT
  Sex: Female
  Weight: 49 kg

DRUGS (25)
  1. MICAFUNGIN SODIUM [Concomitant]
     Indication: ANTIFUNGAL PROPHYLAXIS
     Dosage: 50 MG, QD
     Route: 042
     Dates: start: 20090802, end: 20090917
  2. HYDROCORTISONE SODIUM SUCCINATE [Concomitant]
     Indication: PREMEDICATION
     Dosage: UNK
     Route: 065
     Dates: start: 20090808, end: 20090808
  3. LEVOFLOXACIN [Concomitant]
     Indication: ANTIBIOTIC PROPHYLAXIS
     Dosage: UNK
     Route: 065
     Dates: start: 20090801, end: 20090831
  4. SULFAMETHOXAZOLE W [Concomitant]
     Indication: ANTIFUNGAL PROPHYLAXIS
     Dosage: UNK
     Route: 065
     Dates: start: 20090801, end: 20100107
  5. CYCLOSPORINE [Concomitant]
     Dosage: 2 MG/KG, QD
     Route: 042
     Dates: start: 20090818, end: 20090916
  6. URSODIOL [Concomitant]
     Indication: PROPHYLAXIS
     Dosage: UNK
     Route: 065
     Dates: start: 20090801, end: 20090831
  7. CYCLOSPORINE [Concomitant]
     Indication: PROPHYLAXIS AGAINST GRAFT VERSUS HOST DISEASE
     Dosage: 3 MG/KG, QD
     Route: 042
     Dates: start: 20090811, end: 20090817
  8. METHOTREXATE [Concomitant]
     Indication: PROPHYLAXIS AGAINST GRAFT VERSUS HOST DISEASE
     Dosage: 22 MG, QD
     Route: 042
     Dates: start: 20090813, end: 20090813
  9. FLUDARABINE PHOSPHATE [Concomitant]
     Indication: CHRONIC MYELOID LEUKAEMIA
     Dosage: 44 MG, QD
     Route: 042
     Dates: start: 20090802, end: 20090807
  10. VALPROATE SODIUM [Concomitant]
     Indication: CONVULSION PROPHYLAXIS
     Dosage: UNK
     Route: 065
     Dates: start: 20090805, end: 20090809
  11. HEPARIN [Concomitant]
     Indication: PRODUCT USED FOR UNKNOWN INDICATION
     Route: 065
  12. ACYCLOVIR [Concomitant]
     Indication: ANTIVIRAL PROPHYLAXIS
     Dosage: UNK
     Route: 065
     Dates: start: 20090801, end: 20090918
  13. THYMOGLOBULIN [Suspect]
     Dosage: 125 MG, QD
     Route: 042
     Dates: start: 20090808, end: 20090811
  14. METHOTREXATE [Concomitant]
     Dosage: 15 MG, QD
     Route: 042
     Dates: start: 20090815, end: 20090815
  15. METHOTREXATE [Concomitant]
     Dosage: 15 MG, QD
     Route: 042
     Dates: start: 20090818, end: 20090818
  16. NORMAL HUMAN IMMUNOGLOBULIN [Concomitant]
     Indication: HYPOGAMMAGLOBULINAEMIA
     Dosage: UNK
     Route: 042
     Dates: start: 20090818, end: 20091007
  17. GRANISETRON HCL [Concomitant]
     Indication: PROPHYLAXIS OF NAUSEA AND VOMITING
     Dosage: UNK
     Route: 065
     Dates: start: 20090802, end: 20090811
  18. FAMOTIDINE [Concomitant]
     Indication: PROPHYLAXIS AGAINST GASTROINTESTINAL ULCER
     Dosage: UNK
     Route: 065
     Dates: start: 20090808, end: 20090811
  19. CYCLOSPORINE [Concomitant]
     Dosage: UNK
     Route: 042
     Dates: start: 20090916, end: 20100212
  20. METHOTREXATE [Concomitant]
     Dosage: 15 MG, QD
     Route: 042
     Dates: start: 20090823, end: 20090823
  21. BUSULFAN [Concomitant]
     Indication: CHRONIC MYELOID LEUKAEMIA
     Dosage: 39 MG, QID
     Route: 042
     Dates: start: 20090806, end: 20090808
  22. CEFOZOPRAN HYDROCHLORIDE [Concomitant]
     Indication: ANTIBIOTIC PROPHYLAXIS
     Dosage: 1 G, TID
     Route: 042
     Dates: start: 20090802, end: 20090908
  23. METHYLPREDNISOLONE SODIUM SUCCINATE [Concomitant]
     Indication: PREMEDICATION
     Dosage: 250 MG, QD
     Route: 042
     Dates: start: 20090808, end: 20090811
  24. HEPARIN SODIUM [Concomitant]
     Indication: PROPHYLAXIS
     Dosage: UNK
     Route: 065
     Dates: start: 20090801, end: 20090911
  25. ITRACONAZOLE [Concomitant]
     Indication: ANTIFUNGAL PROPHYLAXIS
     Dosage: UNK
     Route: 065
     Dates: start: 20090917, end: 20091003

REACTIONS (5)
  - CYTOMEGALOVIRUS VIRAEMIA [None]
  - HERPES ZOSTER [None]
  - CYTOMEGALOVIRUS INFECTION [None]
  - CHRONIC MYELOID LEUKAEMIA [None]
  - CHRONIC GRAFT VERSUS HOST DISEASE [None]
